FAERS Safety Report 7319130-X (Version None)
Quarter: 2011Q1

REPORT INFORMATION
  Report Type: 
  Country: None (occurrence: None)
  Receive Date: 20110228
  Receipt Date: 20110201
  Transmission Date: 20110831
  Serious: No
  Sender: FDA-Public Use
  Company Number: US-B.I. PHARMACEUTICALS,INC./RIDGEFIELD-2011-BP-00218BP

PATIENT
  Age: 71 Year
  Sex: Female

DRUGS (5)
  1. SPIRONOLACTONE [Concomitant]
     Indication: HYPERTENSION
  2. ASA [Concomitant]
     Indication: STENT PLACEMENT
  3. DILANTIN [Concomitant]
     Indication: CONVULSION
  4. PLAVIX [Concomitant]
     Indication: STENT PLACEMENT
  5. CATAPRES-TTS-1 [Suspect]
     Indication: HYPERTENSION
     Dosage: 0.2 MG
     Route: 062

REACTIONS (6)
  - PRURITUS [None]
  - ERYTHEMA [None]
  - APPLICATION SITE ERYTHEMA [None]
  - APPLICATION SITE IRRITATION [None]
  - APPLICATION SITE PRURITUS [None]
  - DRY SKIN [None]
